FAERS Safety Report 11835377 (Version 1)
Quarter: 2015Q4

REPORT INFORMATION
  Report Type: Spontaneous
  Country: US (occurrence: None)
  Receive Date: 20151214
  Receipt Date: 20151214
  Transmission Date: 20160305
  Serious: Yes (Other)
  Sender: FDA-Public Use
  Company Number: None

PATIENT
  Age: 57 Year
  Sex: Male
  Weight: 81.65 kg

DRUGS (1)
  1. NAZIL OFTENO [Suspect]
     Active Substance: NAPHAZOLINE HYDROCHLORIDE
     Indication: OCULAR HYPERAEMIA
     Dosage: INTO THE EYE
     Route: 047
     Dates: start: 20140601, end: 20141231

REACTIONS (2)
  - Blood disorder [None]
  - Epistaxis [None]

NARRATIVE: CASE EVENT DATE: 20141231
